FAERS Safety Report 5696529-9 (Version None)
Quarter: 2008Q2

REPORT INFORMATION
  Report Type: 
  Country: None (occurrence: None)
  Receive Date: 20080408
  Receipt Date: 20080331
  Transmission Date: 20081010
  Serious: Yes (Death)
  Sender: FDA-Public Use
  Company Number: JP-JNJFOC-20080400143

PATIENT
  Age: 45 Year
  Sex: Male

DRUGS (8)
  1. RISPERDAL [Suspect]
     Indication: DRUG USE FOR UNKNOWN INDICATION
     Route: 048
  2. RISPERIDONE [Suspect]
     Indication: DRUG USE FOR UNKNOWN INDICATION
  3. DISTIGMINE BROMIDE [Concomitant]
     Route: 048
  4. FLUNITRAZEPAM [Concomitant]
     Route: 048
  5. QUAZEPAM [Concomitant]
     Route: 048
  6. BROMAZEPAM [Concomitant]
     Route: 048
  7. TRIMEBUTINE MALEATE [Concomitant]
     Route: 048
  8. SENNA EXTRACT [Concomitant]

REACTIONS (4)
  - DEATH [None]
  - ELECTROCARDIOGRAM ABNORMAL [None]
  - HYPONATRAEMIA [None]
  - WATER INTOXICATION [None]
